FAERS Safety Report 23934560 (Version 1)
Quarter: 2024Q2

REPORT INFORMATION
  Report Type: Spontaneous
  Country: US (occurrence: US)
  Receive Date: 20240603
  Receipt Date: 20240603
  Transmission Date: 20240715
  Serious: No
  Sender: FDA-Public Use
  Company Number: US-NEUROCRINE BIOSCIENCES INC.-2024NBI05066

PATIENT
  Sex: Male

DRUGS (3)
  1. INGREZZA [Suspect]
     Active Substance: VALBENAZINE
     Indication: Dyskinesia
     Dosage: 40 MILLIGRAM, QD
     Route: 065
  2. INGREZZA [Suspect]
     Active Substance: VALBENAZINE
     Indication: Chest pain
  3. INGREZZA [Suspect]
     Active Substance: VALBENAZINE
     Indication: Muscle twitching

REACTIONS (6)
  - Chest pain [Unknown]
  - Nerve injury [Unknown]
  - Musculoskeletal stiffness [Not Recovered/Not Resolved]
  - Injury [Not Recovered/Not Resolved]
  - Headache [Not Recovered/Not Resolved]
  - Off label use [Unknown]
